FAERS Safety Report 5868854-X (Version None)
Quarter: 2008Q3

REPORT INFORMATION
  Report Type: 
  Country: None (occurrence: None)
  Receive Date: 20080902
  Receipt Date: 20080902
  Transmission Date: 20090109
  Serious: Yes (Life-Threatening, Hospitalization)
  Sender: FDA-Public Use
  Company Number: None

PATIENT
  Age: 39 Year
  Sex: Male
  Weight: 92.0802 kg

DRUGS (2)
  1. FENTANYL-100 [Suspect]
     Indication: CANCER PAIN
     Dosage: 1 PATCH EVERY 72 HOURS TRANSDERMAL
     Route: 062
  2. OXYCODONE 20MG/ML ETHEX [Suspect]
     Dosage: 0.25 TO 1 ML Q3-4H PRN OTHER
     Route: 050

REACTIONS (5)
  - EMOTIONAL DISTRESS [None]
  - HYPOTENSION [None]
  - HYPOTHERMIA [None]
  - UNRESPONSIVE TO STIMULI [None]
  - WEIGHT DECREASED [None]
